FAERS Safety Report 7701143-7 (Version None)
Quarter: 2011Q3

REPORT INFORMATION
  Report Type: 
  Country: None (occurrence: None)
  Receive Date: 20110822
  Receipt Date: 20110726
  Transmission Date: 20111222
  Serious: Yes (Hospitalization)
  Sender: FDA-Public Use
  Company Number: US-BAYER-200924265GPV

PATIENT
  Age: 54 Year
  Sex: Male
  Weight: 76 kg

DRUGS (4)
  1. SORAFENIB (RAF KINASE INHIBITOR) [Suspect]
     Indication: HEPATIC NEOPLASM MALIGNANT
     Route: 048
     Dates: start: 20090402, end: 20090411
  2. RABEPRAZOLE SODIUM [Concomitant]
     Indication: PRODUCT USED FOR UNKNOWN INDICATION
     Route: 065
     Dates: start: 20060502
  3. ENTECAVIR [Concomitant]
     Route: 065
     Dates: start: 20061113
  4. ANTIVIRALS FOR SYSTEMIC USE [Concomitant]
     Indication: PRODUCT USED FOR UNKNOWN INDICATION
     Route: 065
     Dates: start: 20061113

REACTIONS (2)
  - LIVER DISORDER [None]
  - LIVER ABSCESS [None]
